FAERS Safety Report 8228297-0 (Version None)
Quarter: 2012Q1

REPORT INFORMATION
  Report Type: 
  Country: None (occurrence: None)
  Receive Date: 20120322
  Receipt Date: 20111005
  Transmission Date: 20120608
  Serious: No
  Sender: FDA-Public Use
  Company Number: US-BRISTOL-MYERS SQUIBB COMPANY-16134256

PATIENT

DRUGS (1)
  1. ERBITUX [Suspect]
     Dosage: 100MG VIAL,09C00511B,EXP.DT NOV/2012,NDC# 66733-948-23

REACTIONS (1)
  - INCORRECT STORAGE OF DRUG [None]
